FAERS Safety Report 24994552 (Version 1)
Quarter: 2025Q1

REPORT INFORMATION
  Report Type: Spontaneous
  Country: CA (occurrence: CA)
  Receive Date: 20250221
  Receipt Date: 20250221
  Transmission Date: 20250408
  Serious: Yes (Hospitalization)
  Sender: ROCHE
  Company Number: CA-ROCHE-10000208333

PATIENT
  Age: 55 Year
  Sex: Female
  Weight: 125 kg

DRUGS (19)
  1. AVASTIN [Suspect]
     Active Substance: BEVACIZUMAB
     Indication: Adenocarcinoma of the cervix
     Route: 040
  2. KEYTRUDA [Suspect]
     Active Substance: PEMBROLIZUMAB
     Indication: Adenocarcinoma of the cervix
     Route: 065
  3. PARAPLATIN [Suspect]
     Active Substance: CARBOPLATIN
     Indication: Adenocarcinoma of the cervix
     Route: 040
  4. TAXOL [Suspect]
     Active Substance: PACLITAXEL
     Indication: Adenocarcinoma of the cervix
     Route: 040
  5. ATORVASTATIN [Concomitant]
     Active Substance: ATORVASTATIN
     Route: 065
  6. BUTYLSCOPOLAMINE BROMIDE [Concomitant]
     Active Substance: BUTYLSCOPOLAMINE BROMIDE
  7. CHOLECALCIFEROL [Concomitant]
     Active Substance: CHOLECALCIFEROL
  8. CISPLATIN [Concomitant]
     Active Substance: CISPLATIN
     Route: 040
  9. CLONAZEPAM [Concomitant]
     Active Substance: CLONAZEPAM
  10. DEXAMETHASONE [Concomitant]
     Active Substance: DEXAMETHASONE
     Route: 065
  11. HYDROMORPHONE [Concomitant]
     Active Substance: HYDROMORPHONE
  12. LEVOTHYROXINE [Concomitant]
     Active Substance: LEVOTHYROXINE
  13. LOSARTAN POTASSIUM AND HYDROCHLOROTHIAZIDE [Concomitant]
     Active Substance: HYDROCHLOROTHIAZIDE\LOSARTAN POTASSIUM
  14. METOCLOPRAMIDE [Concomitant]
     Active Substance: METOCLOPRAMIDE
  15. NYSTATIN [Concomitant]
     Active Substance: NYSTATIN
  16. ONDANSETRON [Concomitant]
     Active Substance: ONDANSETRON
  17. PANTOPRAZOLE [Concomitant]
     Active Substance: PANTOPRAZOLE
  18. POTASSIUM CHLORIDE [Concomitant]
     Active Substance: POTASSIUM CHLORIDE
  19. SENNA [Concomitant]
     Active Substance: SENNOSIDES

REACTIONS (3)
  - Escherichia test positive [Recovering/Resolving]
  - Febrile neutropenia [Recovering/Resolving]
  - Urinary tract infection [Recovering/Resolving]
